FAERS Safety Report 25389827 (Version 1)
Quarter: 2025Q2

REPORT INFORMATION
  Report Type: Spontaneous
  Country: FR (occurrence: FR)
  Receive Date: 20250603
  Receipt Date: 20250603
  Transmission Date: 20250717
  Serious: Yes (Death, Hospitalization, Other)
  Sender: BRISTOL-MYERS SQUIBB COMPANY
  Company Number: None

PATIENT
  Age: 62 Year
  Sex: Male
  Weight: 54 kg

DRUGS (5)
  1. ADAGRASIB [Suspect]
     Active Substance: ADAGRASIB
     Indication: Lung adenocarcinoma
     Route: 048
     Dates: start: 20250115, end: 20250303
  2. ADAGRASIB [Suspect]
     Active Substance: ADAGRASIB
     Route: 048
     Dates: start: 20250305, end: 20250310
  3. PERINDOPRIL [Concomitant]
     Active Substance: PERINDOPRIL
     Indication: Product used for unknown indication
  4. TAMSULOSIN HYDROCHLORIDE [Concomitant]
     Active Substance: TAMSULOSIN HYDROCHLORIDE
     Indication: Product used for unknown indication
  5. SKENAN [Concomitant]
     Active Substance: MORPHINE SULFATE
     Indication: Product used for unknown indication

REACTIONS (3)
  - Tremor [Not Recovered/Not Resolved]
  - Hepatic cytolysis [Recovered/Resolved]
  - Multiple organ dysfunction syndrome [Fatal]

NARRATIVE: CASE EVENT DATE: 20250303
